FAERS Safety Report 9830269 (Version 2)
Quarter: 2014Q1

REPORT INFORMATION
  Report Type: Report from Study
  Country: IT (occurrence: IT)
  Receive Date: 20140120
  Receipt Date: 20140225
  Transmission Date: 20141002
  Serious: Yes (Hospitalization)
  Sender: FDA-Public Use
  Company Number: IT-ROCHE-1331939

PATIENT
  Age: 66 Year
  Sex: Female
  Weight: 55 kg

DRUGS (18)
  1. OBINUTUZUMAB [Suspect]
     Indication: DIFFUSE LARGE B-CELL LYMPHOMA
     Dosage: LAST DOSE PRIOR TO SAE WAS ON 10/DEC/2013.?VOLUME OF LAST GA101 TAKEN WAS 250ML AND DOSE CONCENTRATI
     Route: 042
     Dates: start: 20131029
  2. CYCLOPHOSPHAMIDE [Suspect]
     Indication: DIFFUSE LARGE B-CELL LYMPHOMA
     Dosage: DOSE OF LAST CYCLOPHOSPHAMIDE TAKEN 1155MG.?LAST DOSE PRIOR TO SAE WAS ON 11/DEC/2013
     Route: 042
     Dates: start: 20131030
  3. DOXORUBICIN [Suspect]
     Indication: DIFFUSE LARGE B-CELL LYMPHOMA
     Dosage: DOSE OF LAST DOXORUBICIN TAKEN WAS 77MG.?LAST DOSE PRIOR TO SAE WAS ON 11/DEC/2013
     Route: 042
     Dates: start: 20131030
  4. VINCRISTINE [Suspect]
     Indication: DIFFUSE LARGE B-CELL LYMPHOMA
     Dosage: DOSE OF LAST VINCRISTINE TAKEN 2MG.?LAST DOSE PRIOR TO SAE WAS ON 11/DEC/2013
     Route: 040
     Dates: start: 20131030
  5. PREDNISONE [Suspect]
     Indication: DIFFUSE LARGE B-CELL LYMPHOMA
     Dosage: DOSE OF LAST PREDNISONE WAS 12.5MG.?LAST DOSE PRIOR TO SAE WAS ON 21/DEC/2013
     Route: 065
     Dates: start: 20131030
  6. PANTOPRAZOLE [Concomitant]
     Indication: PROPHYLAXIS
  7. BACTRIM [Concomitant]
     Indication: ANTIBIOTIC THERAPY
     Route: 065
     Dates: start: 20131119
  8. LASIX [Concomitant]
     Indication: RENAL HYPOPLASIA
  9. DELTACORTENE [Concomitant]
     Route: 065
     Dates: start: 20131216, end: 20131221
  10. LEVOFLOXACINA [Concomitant]
     Route: 065
     Dates: start: 20131215, end: 20131224
  11. PARACETAMOL [Concomitant]
     Route: 065
     Dates: start: 20131210, end: 20131210
  12. TRIMETON (ITALY) [Concomitant]
     Route: 065
     Dates: start: 20131210, end: 20131210
  13. URBASON [Concomitant]
     Route: 065
     Dates: start: 20131210
  14. COTRIMOXAZOLE [Concomitant]
     Route: 065
     Dates: start: 20140109
  15. ITRACONAZOL [Concomitant]
     Route: 065
     Dates: start: 20131215, end: 20131224
  16. DIFLUCAN [Concomitant]
     Indication: CANDIDA INFECTION
     Route: 065
     Dates: start: 20131231
  17. ZOVIRAX [Concomitant]
     Indication: HERPES VIRUS INFECTION
     Route: 065
     Dates: start: 20131231
  18. CEFIXORAL [Concomitant]
     Route: 065
     Dates: start: 20131231, end: 20140206

REACTIONS (3)
  - Pulmonary embolism [Recovered/Resolved]
  - Dyspnoea [Not Recovered/Not Resolved]
  - Pneumonia [Recovered/Resolved]
